FAERS Safety Report 10608646 (Version 1)
Quarter: 2014Q4

REPORT INFORMATION
  Report Type: Spontaneous
  Country: US (occurrence: US)
  Receive Date: 20141125
  Receipt Date: 20141125
  Transmission Date: 20150529
  Serious: No
  Sender: FDA-Public Use
  Company Number: US-PFIZER INC-2014321121

PATIENT
  Sex: Male

DRUGS (7)
  1. LESCOL [Suspect]
     Active Substance: FLUVASTATIN SODIUM
  2. LOPID [Suspect]
     Active Substance: GEMFIBROZIL
  3. MORPHINE SULFATE. [Suspect]
     Active Substance: MORPHINE SULFATE
  4. TRICOR [Suspect]
     Active Substance: FENOFIBRATE
  5. TRILIPIX [Suspect]
     Active Substance: FENOFIBRIC ACID
  6. PRAVACHOL [Suspect]
     Active Substance: PRAVASTATIN SODIUM
  7. ZETIA [Suspect]
     Active Substance: EZETIMIBE
     Dosage: UNK

REACTIONS (1)
  - Drug hypersensitivity [Unknown]
